FAERS Safety Report 6128016-8 (Version None)
Quarter: 2009Q1

REPORT INFORMATION
  Report Type: 
  Country: None (occurrence: None)
  Receive Date: 20090319
  Receipt Date: 20090310
  Transmission Date: 20090719
  Serious: Yes (Hospitalization, Other)
  Sender: FDA-Public Use
  Company Number: 2009-00911

PATIENT
  Age: 75 Year
  Sex: Female

DRUGS (1)
  1. VELCADE [Suspect]
     Indication: DRUG USE FOR UNKNOWN INDICATION
     Dosage: 0.7 MG
     Dates: end: 20090226

REACTIONS (2)
  - ATRIAL FIBRILLATION [None]
  - NEUROPATHY PERIPHERAL [None]
